FAERS Safety Report 22137848 (Version 1)
Quarter: 2023Q1

REPORT INFORMATION
  Report Type: Spontaneous
  Country: CN (occurrence: CN)
  Receive Date: 20230325
  Receipt Date: 20230325
  Transmission Date: 20230418
  Serious: Yes (Other)
  Sender: FDA-Public Use
  Company Number: CN-002147023-NVSC2023CN065114

PATIENT
  Age: 23 Year
  Sex: Male
  Weight: 70 kg

DRUGS (3)
  1. AZOPT [Suspect]
     Active Substance: BRINZOLAMIDE
     Indication: Intraocular pressure increased
     Dosage: UNK
     Route: 047
     Dates: start: 20230222
  2. AZOPT [Suspect]
     Active Substance: BRINZOLAMIDE
     Dosage: UNK, QD
     Route: 047
  3. AZOPT [Suspect]
     Active Substance: BRINZOLAMIDE
     Dosage: 1 DRP, BID
     Route: 047
     Dates: start: 20230301, end: 20230304

REACTIONS (4)
  - Eye haemorrhage [Recovered/Resolved]
  - Eye paraesthesia [Recovered/Resolved]
  - Conjunctival hyperaemia [Recovered/Resolved]
  - Eye irritation [Unknown]

NARRATIVE: CASE EVENT DATE: 20230305
